FAERS Safety Report 6380227-2 (Version None)
Quarter: 2009Q3

REPORT INFORMATION
  Report Type: 
  Country: None (occurrence: None)
  Receive Date: 20090921
  Receipt Date: 20090910
  Transmission Date: 20100115
  Serious: Yes (Hospitalization)
  Sender: FDA-Public Use
  Company Number: 2009AP003677

PATIENT
  Age: 73 Year
  Sex: Female

DRUGS (11)
  1. MYCOPHENOLATE MOFETIL [Suspect]
     Indication: LIVER TRANSPLANT
     Dosage: 1 GM;; PO; BID
     Route: 048
     Dates: start: 19950902, end: 20090227
  2. ALFACALCIDOL (ALFACALCIDOL) [Concomitant]
  3. ASPIRIN [Concomitant]
  4. CALCIUM CARBONATE [Concomitant]
  5. FUROSEMIDE [Concomitant]
  6. IBANDRONIC ACID (IBANDRONIC ACID) [Concomitant]
  7. LANSOPRAZOLE [Concomitant]
  8. LEVOTHYROXINE SODIUM [Concomitant]
  9. MULTIVITAMIN (MULTIVITAMIN) [Concomitant]
  10. PREDNISOLONE [Concomitant]
  11. SIMVATATIN (SIMVASTATIN) [Concomitant]

REACTIONS (5)
  - CYTOMEGALOVIRUS INFECTION [None]
  - DIARRHOEA [None]
  - ENTEROCOLITIS [None]
  - FOOD AVERSION [None]
  - WEIGHT DECREASED [None]
